FAERS Safety Report 8852843 (Version 1)
Quarter: 2012Q4

REPORT INFORMATION
  Report Type: 
  Country: US (occurrence: US)
  Receive Date: 20121022
  Receipt Date: 20121022
  Transmission Date: 20130627
  Serious: Yes (Hospitalization, Other)
  Sender: FDA-Public Use
  Company Number: US-TEVA-365237USA

PATIENT
  Age: 34 Year
  Sex: Female

DRUGS (4)
  1. FENTANYL [Suspect]
     Dosage: 11 patches placed dermally
  2. LORAZEPAM [Suspect]
     Dosage: empty pill bottle, 120 x lorazepam 1mg
     Route: 048
  3. ZOLPIDEM [Suspect]
     Dosage: empty pill bottle, 60 x zolpidem 10mg
     Route: 048
  4. OXYCODONE [Suspect]
     Dosage: empty pill bottle, 90 x oxycodone 15mg
     Route: 048

REACTIONS (2)
  - Overdose [Recovered/Resolved]
  - Stress cardiomyopathy [Recovered/Resolved]
